FAERS Safety Report 19716774 (Version 1)
Quarter: 2021Q3

REPORT INFORMATION
  Report Type: Spontaneous
  Country: DE (occurrence: DE)
  Receive Date: 20210818
  Receipt Date: 20210818
  Transmission Date: 20211014
  Serious: Yes (Hospitalization)
  Sender: FDA-Public Use
  Company Number: DE-PFIZER INC-202100987170

PATIENT
  Age: 64 Year
  Sex: Female

DRUGS (5)
  1. NALOXONE HYDROCHLORIDE/TILIDINE HYDROCHLORIDE [Suspect]
     Active Substance: NALOXONE HYDROCHLORIDE\TILIDINE HYDROCHLORIDE
  2. NOVAMINSULFON [Concomitant]
     Active Substance: METAMIZOLE
  3. LYRICA [Suspect]
     Active Substance: PREGABALIN
  4. CANNABIDIOL [Suspect]
     Active Substance: CANNABIDIOL
  5. DRONABINOL. [Suspect]
     Active Substance: DRONABINOL

REACTIONS (7)
  - Fall [Unknown]
  - Wound [Unknown]
  - Periorbital haematoma [Unknown]
  - Hypotension [Unknown]
  - Haematoma [Unknown]
  - Traumatic haemorrhage [Unknown]
  - Fracture [Unknown]
